FAERS Safety Report 15840036 (Version 1)
Quarter: 2019Q1

REPORT INFORMATION
  Report Type: Spontaneous
  Country: CH (occurrence: CH)
  Receive Date: 20190117
  Receipt Date: 20190117
  Transmission Date: 20190417
  Serious: Yes (Hospitalization, Other)
  Sender: FDA-Public Use
  Company Number: CH-009507513-1901CHE003785

PATIENT
  Age: 98 Year
  Sex: Female

DRUGS (30)
  1. TEMESTA [LORAZEPAM] [Suspect]
     Active Substance: LORAZEPAM
     Dosage: MAX 4X/D
     Route: 048
     Dates: start: 20181123, end: 20181203
  2. FURADANTINE [Concomitant]
     Active Substance: NITROFURANTOIN
     Dosage: UNK
     Dates: start: 20181026, end: 20181027
  3. BUSCOPAN [Concomitant]
     Active Substance: BUTYLSCOPOLAMINE BROMIDE
     Dosage: UNK
     Dates: start: 20181118, end: 20181203
  4. ZYPREXA [Concomitant]
     Active Substance: OLANZAPINE
     Dosage: UNK
     Dates: start: 20181204
  5. DAFALGAN [Suspect]
     Active Substance: ACETAMINOPHEN
     Dosage: 1 GRAM
     Route: 048
     Dates: start: 20181123, end: 20181203
  6. TORSEMIDE. [Concomitant]
     Active Substance: TORSEMIDE
     Dosage: AS NECESSARY
  7. ANXIOLIT [Concomitant]
     Active Substance: OXAZEPAM
     Dosage: UNK
     Dates: start: 20181026, end: 20181107
  8. CYMBALTA [Concomitant]
     Active Substance: DULOXETINE HYDROCHLORIDE
     Dosage: UNK
     Dates: end: 20181107
  9. HALDOL [Concomitant]
     Active Substance: HALOPERIDOL
     Dosage: AS NECESSARY
     Dates: start: 20181031, end: 20181203
  10. POTASSIUM CHLORIDE. [Concomitant]
     Active Substance: POTASSIUM CHLORIDE
     Dosage: UNK
     Dates: start: 20181126, end: 20181128
  11. CETIRIZINE HYDROCHLORIDE. [Concomitant]
     Active Substance: CETIRIZINE HYDROCHLORIDE
     Dosage: AS NECESSARY
     Dates: start: 20181106, end: 20181123
  12. REMERON [Suspect]
     Active Substance: MIRTAZAPINE
     Dosage: 15 MILLIGRAM
     Route: 048
     Dates: start: 20181130, end: 20181203
  13. BACTRIM [Concomitant]
     Active Substance: SULFAMETHOXAZOLE\TRIMETHOPRIM
     Dosage: UNK
     Dates: start: 20181027, end: 20181031
  14. CHOLECALCIFEROL [Concomitant]
     Active Substance: CHOLECALCIFEROL
     Dosage: UNK
  15. LAXOBERON [Concomitant]
     Active Substance: SODIUM PICOSULFATE
     Dosage: AS NECESSARY
     Dates: start: 20181027
  16. DAFALGAN [Suspect]
     Active Substance: ACETAMINOPHEN
     Dosage: 1 GRAM
     Route: 048
     Dates: start: 20181107, end: 20181123
  17. ELIQUIS [Concomitant]
     Active Substance: APIXABAN
     Dosage: UNK
  18. ANXIOLIT [Concomitant]
     Active Substance: OXAZEPAM
     Dates: start: 20181204
  19. PASPERTIN [Concomitant]
     Dosage: AS NECESSARY
     Dates: start: 20181128, end: 20181130
  20. MORPHINE HYDROCHLORIDE [Concomitant]
     Active Substance: MORPHINE HYDROCHLORIDE
     Dosage: AS NECESSARY
     Dates: start: 20181123
  21. REMERON [Suspect]
     Active Substance: MIRTAZAPINE
     Dosage: 15 MILLIGRAM
     Route: 048
     Dates: start: 20181107, end: 20181120
  22. REMERON [Suspect]
     Active Substance: MIRTAZAPINE
     Dosage: 30 MILLIGRAM
     Route: 048
     Dates: start: 20181121, end: 20181122
  23. DAFALGAN [Suspect]
     Active Substance: ACETAMINOPHEN
     Dosage: 1 GRAM
     Route: 048
     Dates: end: 20181106
  24. CITALOPRAM [Concomitant]
     Active Substance: CITALOPRAM HYDROBROMIDE
     Dosage: UNK
     Dates: start: 20181127, end: 20181127
  25. NEXIUM [Concomitant]
     Active Substance: ESOMEPRAZOLE MAGNESIUM
     Dosage: UNK
     Dates: start: 20181127, end: 20181128
  26. BELOC-ZOK [Concomitant]
     Active Substance: METOPROLOL SUCCINATE
     Dosage: UNK
  27. TEMGESIC [Concomitant]
     Active Substance: BUPRENORPHINE HYDROCHLORIDE
     Dosage: AS NECESSARY
     Dates: start: 20181028, end: 20181112
  28. NITRODERM [Suspect]
     Active Substance: NITROGLYCERIN
     Dosage: 5 MILLIGRAM
     Route: 062
     Dates: end: 20181122
  29. TEMESTA [LORAZEPAM] [Suspect]
     Active Substance: LORAZEPAM
     Dosage: MAX 4X/D ; AS NECESSARY
     Dates: start: 20181117, end: 20181203
  30. LACRYCON [Concomitant]
     Active Substance: HYALURONATE SODIUM
     Dosage: UNK
     Dates: start: 20181026

REACTIONS (1)
  - Liver injury [Recovered/Resolved]

NARRATIVE: CASE EVENT DATE: 20181123
